FAERS Safety Report 9947406 (Version 1)
Quarter: 2014Q1

REPORT INFORMATION
  Report Type: Report from Study
  Country: US (occurrence: US)
  Receive Date: 20140303
  Receipt Date: 20140303
  Transmission Date: 20141002
  Serious: No
  Sender: FDA-Public Use
  Company Number: US-ABBVIE-13P-163-1059832-00

PATIENT
  Age: 83 Year
  Sex: Female

DRUGS (11)
  1. HUMIRA [Suspect]
     Indication: PSORIASIS
     Dates: start: 20130206
  2. ATENOLOL [Concomitant]
     Indication: BLOOD PRESSURE
  3. COZAAR [Concomitant]
     Indication: BLOOD PRESSURE
  4. DETROL LA [Concomitant]
     Indication: BLADDER DISORDER
  5. SERTRALINE [Concomitant]
     Indication: PRODUCT USED FOR UNKNOWN INDICATION
  6. CLOBETASOL 0.05% [Concomitant]
     Indication: PSORIASIS
     Dosage: APPLY TO SCALP DAILY AND TWICE DAILY TO HANDS AND FEET
  7. FLONASE [Concomitant]
     Indication: DISTURBANCE IN ATTENTION
     Dosage: 2 SQUIRTS IN EACH NOSTRIL DAILY, AS NEEDED
  8. VOLTAREN [Concomitant]
     Indication: BURSITIS
     Route: 061
  9. VOLTAREN [Concomitant]
     Indication: ARTHRALGIA
  10. EYE DROPS [Concomitant]
     Indication: DRY EYE
  11. DYFLOGEST [Concomitant]
     Indication: IRRITABLE BOWEL SYNDROME

REACTIONS (3)
  - Vomiting [Recovered/Resolved]
  - Diarrhoea [Recovered/Resolved]
  - Drug ineffective [Unknown]
